FAERS Safety Report 18355242 (Version 1)
Quarter: 2020Q4

REPORT INFORMATION
  Report Type: Spontaneous
  Country: US (occurrence: US)
  Receive Date: 20201006
  Receipt Date: 20201006
  Transmission Date: 20210114
  Serious: Yes (Death)
  Sender: FDA-Public Use
  Company Number: None

PATIENT
  Age: 75 Year
  Sex: Male

DRUGS (1)
  1. CAPECITABINE 500MG [Suspect]
     Active Substance: CAPECITABINE
     Indication: PANCREATIC CARCINOMA
     Dosage: OTHER FREQUENCY:7 TIMES DAILY;?
     Route: 048
     Dates: start: 20200918, end: 20201002

REACTIONS (1)
  - Death [None]

NARRATIVE: CASE EVENT DATE: 20201002
